FAERS Safety Report 8436746-8 (Version None)
Quarter: 2012Q2

REPORT INFORMATION
  Report Type: 
  Country: None (occurrence: None)
  Receive Date: 20120614
  Receipt Date: 20120611
  Transmission Date: 20120825
  Serious: Yes (Hospitalization)
  Sender: FDA-Public Use
  Company Number: FR-GILEAD-2012-0056435

PATIENT
  Sex: Male

DRUGS (6)
  1. PREZISTA [Concomitant]
  2. TRUVADA [Concomitant]
  3. VALGANCICLOVIR [Suspect]
     Dosage: UNK
     Route: 048
     Dates: start: 20120417, end: 20120518
  4. SULFADIAZINE [Suspect]
     Dosage: UNK UNK, QID
     Route: 048
     Dates: start: 20120319, end: 20120518
  5. ATRIPLA [Suspect]
     Indication: HIV INFECTION
     Dosage: UNK
     Route: 048
     Dates: start: 20120410, end: 20120507
  6. NORVIR [Concomitant]

REACTIONS (3)
  - DRUG RASH WITH EOSINOPHILIA AND SYSTEMIC SYMPTOMS [None]
  - EOSINOPHILIA [None]
  - RASH [None]
